FAERS Safety Report 11949631 (Version 1)
Quarter: 2016Q1

REPORT INFORMATION
  Report Type: Spontaneous
  Country: US (occurrence: None)
  Receive Date: 20160121
  Receipt Date: 20160121
  Transmission Date: 20160526
  Serious: Yes (Other)
  Sender: FDA-Public Use
  Company Number: None

PATIENT
  Age: 54 Year
  Sex: Male
  Weight: 70.31 kg

DRUGS (18)
  1. MELOXICAM 15 MG UNICHEM PHARMAC [Suspect]
     Active Substance: MELOXICAM
     Indication: ARTHRALGIA
     Dosage: 15 MG/TAB, ONE TAB
     Route: 048
     Dates: start: 20151215, end: 20160118
  2. ALVESCO [Concomitant]
     Active Substance: CICLESONIDE
  3. BACLOFEN. [Concomitant]
     Active Substance: BACLOFEN
  4. GAVISCON [Concomitant]
     Active Substance: ALUMINUM HYDROXIDE\MAGNESIUM CARBONATE
  5. VITAMIN B12 [Concomitant]
     Active Substance: CYANOCOBALAMIN
  6. TIZANIDINE. [Concomitant]
     Active Substance: TIZANIDINE
  7. AXIRON [Concomitant]
     Active Substance: TESTOSTERONE
  8. METFORMIN [Concomitant]
     Active Substance: METFORMIN HYDROCHLORIDE
  9. THEOPHYLLINE [Concomitant]
     Active Substance: THEOPHYLLINE ANHYDROUS
  10. LOSARTAN. [Concomitant]
     Active Substance: LOSARTAN
  11. PROLIA [Concomitant]
     Active Substance: DENOSUMAB
  12. FERROUS SULFATE [Concomitant]
     Active Substance: FERROUS SULFATE\FERROUS SULFATE, DRIED
  13. CITRACAL + D [Concomitant]
     Active Substance: CALCIUM CITRATE\VITAMIN D
  14. ASPIRIN. [Concomitant]
     Active Substance: ASPIRIN
  15. ATROVASTATIN [Concomitant]
     Active Substance: ATORVASTATIN CALCIUM
  16. MULTIVITAMIN [Concomitant]
     Active Substance: VITAMINS
  17. RANITIDINE [Concomitant]
     Active Substance: RANITIDINE\RANITIDINE HYDROCHLORIDE
  18. MAGNESIUM OXIDE. [Concomitant]
     Active Substance: MAGNESIUM OXIDE

REACTIONS (2)
  - Heart rate increased [None]
  - Blood pressure increased [None]

NARRATIVE: CASE EVENT DATE: 20160112
